FAERS Safety Report 25963359 (Version 2)
Quarter: 2025Q4

REPORT INFORMATION
  Report Type: Spontaneous
  Country: EU (occurrence: EU)
  Receive Date: 20251027
  Receipt Date: 20251103
  Transmission Date: 20260117
  Serious: Yes (Other)
  Sender: PFIZER
  Company Number: EU-ROCHE-10000402447

PATIENT
  Age: 52 Year
  Sex: Female
  Weight: 46 kg

DRUGS (12)
  1. CARBOPLATIN [Suspect]
     Active Substance: CARBOPLATIN
     Indication: Triple negative breast cancer
     Dosage: UNK
     Dates: start: 20250425
  2. CARBOPLATIN [Suspect]
     Active Substance: CARBOPLATIN
     Dosage: 549 MG, DAILY (LAST DAILY DOSE PRIOR TO EVENT)
     Route: 042
     Dates: start: 20250627
  3. DOXORUBICIN HYDROCHLORIDE [Suspect]
     Active Substance: DOXORUBICIN HYDROCHLORIDE
     Indication: Triple negative breast cancer
     Dosage: UNK
     Dates: start: 20250718
  4. DOXORUBICIN HYDROCHLORIDE [Suspect]
     Active Substance: DOXORUBICIN HYDROCHLORIDE
     Dosage: 89 MG, DAILY, (LAST DAILY DOSE PRIOR TO EVENT ONSET)
     Route: 042
     Dates: start: 20250919
  5. ATEZOLIZUMAB [Suspect]
     Active Substance: ATEZOLIZUMAB
     Indication: Triple negative breast cancer
     Dosage: UNK
     Dates: start: 20250425
  6. ATEZOLIZUMAB [Suspect]
     Active Substance: ATEZOLIZUMAB
     Dosage: 1200 MG, DAILY (LAST DAILY DOSE PRIOR TO EVENT ONSET)
     Route: 042
     Dates: start: 20250829
  7. TIRAGOLUMAB [Suspect]
     Active Substance: TIRAGOLUMAB
     Indication: Triple negative breast cancer
     Dosage: UNK
     Route: 042
     Dates: start: 20250425
  8. TIRAGOLUMAB [Suspect]
     Active Substance: TIRAGOLUMAB
     Dosage: 600 MG, DAILY (LAST DAILY DOSE PRIOR TO EVENT ONSET)
     Route: 042
     Dates: start: 20250829
  9. PACLITAXEL [Suspect]
     Active Substance: PACLITAXEL
     Indication: Triple negative breast cancer
     Dosage: UNK
     Dates: start: 20250425
  10. PACLITAXEL [Suspect]
     Active Substance: PACLITAXEL
     Dosage: 149 MG, DAILY (LAST DAILY DOSE PRIOR TO EVENT ONSET)
     Route: 042
     Dates: start: 20250711
  11. CYCLOPHOSPHAMIDE [Suspect]
     Active Substance: CYCLOPHOSPHAMIDE
     Indication: Triple negative breast cancer
     Dosage: UNK
     Dates: start: 20250718
  12. CYCLOPHOSPHAMIDE [Suspect]
     Active Substance: CYCLOPHOSPHAMIDE
     Dosage: 894 MG, DAILY, (LAST DAILY DOSE PRIOR TO EVENT ONSET)
     Route: 042
     Dates: start: 20250919

REACTIONS (2)
  - Immune-mediated myocarditis [Not Recovered/Not Resolved]
  - Off label use [Unknown]

NARRATIVE: CASE EVENT DATE: 20250425
